FAERS Safety Report 7258692-8 (Version None)
Quarter: 2011Q1

REPORT INFORMATION
  Report Type: 
  Country: None (occurrence: None)
  Receive Date: 20110129
  Receipt Date: 20100526
  Transmission Date: 20110831
  Serious: No
  Sender: FDA-Public Use
  Company Number: US-ABBOTT-10P-163-0643017-00

PATIENT
  Sex: Female
  Weight: 59.02 kg

DRUGS (6)
  1. AMITRIPTYLINE HCL [Concomitant]
     Indication: IRRITABLE BOWEL SYNDROME
     Dosage: 1 TAB IN AM/ 2 TAB IN EVENING
  2. PROPRANOLOL [Concomitant]
     Indication: IRRITABLE BOWEL SYNDROME
  3. OMEPRAZOLE [Concomitant]
     Indication: GASTRIC DISORDER
  4. HUMIRA [Suspect]
     Indication: JUVENILE ARTHRITIS
     Route: 058
     Dates: start: 20100409
  5. OCELLA [Concomitant]
     Indication: ORAL CONTRACEPTION
  6. ALBUTEROL [Concomitant]
     Indication: ASTHMA

REACTIONS (1)
  - INJECTION SITE PAIN [None]
